FAERS Safety Report 5093082-8 (Version None)
Quarter: 2006Q3

REPORT INFORMATION
  Report Type: 
  Country: None (occurrence: None)
  Receive Date: 20060828
  Receipt Date: 20060811
  Transmission Date: 20061208
  Serious: Yes (Death)
  Sender: FDA-Public Use
  Company Number: 2006-144177-NL

PATIENT
  Age: 79 Year
  Sex: Female

DRUGS (15)
  1. DANAPAROID SODIUM [Suspect]
     Indication: DISSEMINATED INTRAVASCULAR COAGULATION
     Dosage: INTRAVENOUS (NOS)
     Route: 042
     Dates: start: 20060129, end: 20060202
  2. DANAPAROID SODIUM [Suspect]
     Indication: DISSEMINATED INTRAVASCULAR COAGULATION
     Dosage: INTRAVENOUS (NOS)
     Route: 042
     Dates: start: 20060302, end: 20060307
  3. AMPICILLIN SODIUM/SULBACTAM SODIUM [Concomitant]
  4. MEROPENEM TRIHYDRATE [Concomitant]
  5. CLINDAMYCIN PHOSPHATE [Concomitant]
  6. VANCOMYCIN HYDROCHLORIDE [Concomitant]
  7. IMMUNE GLOBULIN INTRAVENOUS (HUMAN) [Concomitant]
  8. FAMOTIDINE [Concomitant]
  9. CARPERITIDE [Concomitant]
  10. DOPAMINE HCL [Concomitant]
  11. NAFAMOSTAT MESILATE [Concomitant]
  12. ULINASTATIN [Concomitant]
  13. ANTITHROMBIN III [Concomitant]
  14. MIDAZOLAM [Concomitant]
  15. BUTORPHANOL TARTRATE [Concomitant]

REACTIONS (2)
  - MULTI-ORGAN FAILURE [None]
  - SHOCK HAEMORRHAGIC [None]
